FAERS Safety Report 9580318 (Version 1)
Quarter: 2013Q3

REPORT INFORMATION
  Report Type: Spontaneous
  Country: US (occurrence: None)
  Receive Date: 20130916
  Receipt Date: 20130916
  Transmission Date: 20140515
  Serious: Yes (Other)
  Sender: FDA-Public Use
  Company Number: JPI-P-024902

PATIENT
  Age: 53 Year
  Sex: Female

DRUGS (1)
  1. XYREM (500 MILLIGRAM/MILLILITERS, SOLUTION) (SODIUM OXYBATE) [Suspect]
     Indication: FIBROMYALGIA
     Dosage: 7.5 GM  (3.75 GM,  2 IN 1 D), ORAL
     Route: 048
     Dates: start: 20090903

REACTIONS (2)
  - Sleep apnoea syndrome [None]
  - Respiratory depression [None]
